FAERS Safety Report 21871754 (Version 1)
Quarter: 2023Q1

REPORT INFORMATION
  Report Type: Spontaneous
  Country: None (occurrence: GB)
  Receive Date: 20230117
  Receipt Date: 20230117
  Transmission Date: 20230418
  Serious: Yes (Hospitalization)
  Sender: FDA-Public Use
  Company Number: GB-AMNEAL PHARMACEUTICALS-2023-AMRX-00107

PATIENT
  Age: 60 Year
  Sex: Male

DRUGS (2)
  1. RANOLAZINE [Suspect]
     Active Substance: RANOLAZINE
     Indication: Suicidal ideation
     Route: 065
  2. NICORANDIL [Suspect]
     Active Substance: NICORANDIL
     Indication: Suicidal ideation
     Route: 065

REACTIONS (3)
  - Ventricular fibrillation [Unknown]
  - Cardiac arrest [Unknown]
  - Hypotension [Unknown]
